FAERS Safety Report 18683385 (Version 1)
Quarter: 2020Q4

REPORT INFORMATION
  Report Type: Spontaneous
  Country: JP (occurrence: JP)
  Receive Date: 20201230
  Receipt Date: 20201230
  Transmission Date: 20210114
  Serious: Yes (Hospitalization, Other)
  Sender: FDA-Public Use
  Company Number: JP-PFIZER INC-2020506362

PATIENT
  Age: 5 Decade
  Sex: Male

DRUGS (2)
  1. METHADONE [Interacting]
     Active Substance: METHADONE HYDROCHLORIDE
     Indication: CANCER PAIN
     Dosage: UNK
  2. METRONIDAZOLE. [Suspect]
     Active Substance: METRONIDAZOLE
     Indication: PELVIC ABSCESS
     Dosage: 1500 MG, DAILY

REACTIONS (3)
  - Drug interaction [Unknown]
  - Status epilepticus [Recovered/Resolved]
  - Stress cardiomyopathy [Unknown]
